FAERS Safety Report 25125531 (Version 1)
Quarter: 2025Q1

REPORT INFORMATION
  Report Type: Spontaneous
  Country: CA (occurrence: CA)
  Receive Date: 20250326
  Receipt Date: 20250326
  Transmission Date: 20250409
  Serious: Yes (Other)
  Sender: BRACCO
  Company Number: CA-BRACCO-2025CA01765

PATIENT
  Age: 40 Year
  Sex: Female

DRUGS (1)
  1. ISOVUE 370 [Suspect]
     Active Substance: IOPAMIDOL
     Indication: Computerised tomogram
     Route: 040

REACTIONS (3)
  - Syncope [Unknown]
  - Chills [Unknown]
  - Tongue pruritus [Unknown]
